FAERS Safety Report 5391170-X (Version None)
Quarter: 2007Q3

REPORT INFORMATION
  Report Type: 
  Country: None (occurrence: None)
  Receive Date: 20070719
  Receipt Date: 20070706
  Transmission Date: 20080115
  Serious: Yes (Other)
  Sender: FDA-Public Use
  Company Number: PHFR2007GB01206

PATIENT
  Age: 59 Year
  Sex: Female
  Weight: 58 kg

DRUGS (1)
  1. FEMARA [Suspect]
     Indication: BREAST CANCER
     Dosage: 2.5MG/DAY
     Route: 048
     Dates: start: 20061015, end: 20070401

REACTIONS (2)
  - BLOOD POTASSIUM INCREASED [None]
  - HYPERCHOLESTEROLAEMIA [None]
